FAERS Safety Report 6653337-X (Version None)
Quarter: 2010Q1

REPORT INFORMATION
  Report Type: 
  Country: None (occurrence: None)
  Receive Date: 20100326
  Receipt Date: 20100312
  Transmission Date: 20100710
  Serious: Yes (Hospitalization)
  Sender: FDA-Public Use
  Company Number: DE-ROCHE-690782

PATIENT
  Sex: Female
  Weight: 86 kg

DRUGS (2)
  1. CAPECITABINE [Suspect]
     Indication: RECTAL CANCER
     Dosage: 1000 MG/M2 TWICE DAILY ON DAY 1 TO DAY 15 OF 3 WEEK CYCLE; LAST DOSE PRIOR TO SAE ON 26 FEB 2010
     Route: 048
     Dates: start: 20091005
  2. OXALIPLATIN [Suspect]
     Indication: RECTAL CANCER
     Dosage: 130 MG/M2 ON DAY 1 OF 3 WEEK CYCLE; LAST DOSE PRIOR TO SAE ON 15 FEB 2010; FORM INFUSION
     Route: 042
     Dates: start: 20091005

REACTIONS (1)
  - NEPHROTIC SYNDROME [None]
